FAERS Safety Report 11559258 (Version 3)
Quarter: 2017Q4

REPORT INFORMATION
  Report Type: Report from Study
  Country: CA (occurrence: CA)
  Receive Date: 20150928
  Receipt Date: 20171117
  Transmission Date: 20180320
  Serious: Yes (Death, Other)
  Sender: FDA-Public Use
  Company Number: PHHY2014CA050485

PATIENT
  Age: 87 Year
  Sex: Male
  Weight: 45.35 kg

DRUGS (11)
  1. DIOVAN [Concomitant]
     Active Substance: VALSARTAN
     Indication: PRODUCT USED FOR UNKNOWN INDICATION
     Route: 065
  2. EXJADE [Suspect]
     Active Substance: DEFERASIROX
     Dosage: 500 MG, BID (2 TABLETS OF 250 MG QAM AND 2 TABS OF 250 MG QPM)
     Route: 048
  3. IMODIUM [Concomitant]
     Active Substance: LOPERAMIDE HYDROCHLORIDE
     Indication: PRODUCT USED FOR UNKNOWN INDICATION
     Dosage: UNK UNK, PRN
     Route: 065
  4. EXJADE [Suspect]
     Active Substance: DEFERASIROX
     Dosage: 300 MG, BID
     Route: 048
  5. EXJADE [Suspect]
     Active Substance: DEFERASIROX
     Dosage: 250 MG, QD
     Route: 048
     Dates: start: 20140514
  6. EXJADE [Suspect]
     Active Substance: DEFERASIROX
     Dosage: 250 MG, BID
     Route: 048
  7. EXJADE [Suspect]
     Active Substance: DEFERASIROX
     Dosage: 500 MG, QD
     Route: 048
  8. EXJADE [Suspect]
     Active Substance: DEFERASIROX
     Indication: MYELODYSPLASTIC SYNDROME
     Dosage: 125 MG, BID
     Route: 048
     Dates: start: 20130812, end: 20140408
  9. EXJADE [Suspect]
     Active Substance: DEFERASIROX
     Dosage: 250 MG, BID (250 MG QAM AND 250MG QPM)
     Route: 048
  10. OMEGA 3 [Concomitant]
     Active Substance: OMEGA-3 FATTY ACIDS
     Indication: PRODUCT USED FOR UNKNOWN INDICATION
     Route: 065
  11. GLUCOSAMINE [Concomitant]
     Active Substance: GLUCOSAMINE
     Indication: PRODUCT USED FOR UNKNOWN INDICATION
     Route: 065

REACTIONS (18)
  - Death [Fatal]
  - Blood potassium increased [Unknown]
  - Serum ferritin abnormal [Unknown]
  - Fall [Unknown]
  - Dizziness [Not Recovered/Not Resolved]
  - Haemoglobin decreased [Unknown]
  - Contusion [Unknown]
  - Vertigo [Unknown]
  - Diarrhoea [Unknown]
  - Localised infection [Unknown]
  - Feeling abnormal [Unknown]
  - Blood iron increased [Unknown]
  - Decreased immune responsiveness [Unknown]
  - Limb discomfort [Unknown]
  - Drug intolerance [Unknown]
  - Asthenia [Not Recovered/Not Resolved]
  - Chills [Unknown]
  - Weight decreased [Unknown]

NARRATIVE: CASE EVENT DATE: 20171114
